FAERS Safety Report 12540739 (Version 2)
Quarter: 2016Q3

REPORT INFORMATION
  Report Type: Spontaneous
  Country: JP (occurrence: JP)
  Receive Date: 20160708
  Receipt Date: 20160725
  Transmission Date: 20161109
  Serious: Yes (Hospitalization, Other)
  Sender: FDA-Public Use
  Company Number: JP-009507513-1607JPN001451

PATIENT
  Age: 76 Year
  Sex: Female

DRUGS (10)
  1. FEBURIC [Concomitant]
     Active Substance: FEBUXOSTAT
     Dosage: DAILY DOSE UNKNOWN, FORMULATION: POR
     Route: 048
  2. BELSOMRA [Suspect]
     Active Substance: SUVOREXANT
     Indication: INSOMNIA
     Dosage: DAILY DOSE UNKNOWN
     Route: 048
     Dates: start: 20151007
  3. NEXIUM [Concomitant]
     Active Substance: ESOMEPRAZOLE MAGNESIUM
     Dosage: DAILY DOSE UNKNOWN, FORMULATION: POR
     Route: 048
  4. BETANIS [Concomitant]
     Active Substance: MIRABEGRON
     Dosage: DAILY DOSE UNKNOWN, FORMULATION: POR
     Route: 048
  5. BISOPROLOL FUMARATE. [Concomitant]
     Active Substance: BISOPROLOL FUMARATE
     Dosage: DAILY DOSE UNKNOWN
     Route: 065
  6. PRAVASTATIN SODIUM. [Concomitant]
     Active Substance: PRAVASTATIN SODIUM
     Dosage: DAILY DOSE UNKNOWN, FORMULATION: POR
     Route: 048
  7. BAYASPIRIN [Concomitant]
     Active Substance: ASPIRIN
     Dosage: DAILY DOSE UNKNOWN, FORMULATION: POR
     Route: 048
  8. CAMSHIA [Concomitant]
     Dosage: DAILY DOSAGE UNKNOWN, FORMULATION: POR
     Route: 048
  9. CANAGLU [Concomitant]
     Active Substance: CANAGLIFLOZIN
     Dosage: DAILY DOSE UNKNOWN, FORMULATION: POR
     Route: 048
  10. METGLUCO [Concomitant]
     Active Substance: METFORMIN HYDROCHLORIDE
     Dosage: DAILY DOSE UNKNOWN, FORMULATION: POR
     Route: 048

REACTIONS (3)
  - Cholecystitis [Recovered/Resolved]
  - Cholelithiasis [Recovered/Resolved]
  - Facial paralysis [Recovering/Resolving]

NARRATIVE: CASE EVENT DATE: 20160517
